FAERS Safety Report 11176090 (Version 3)
Quarter: 2016Q2

REPORT INFORMATION
  Report Type: Not Available
  Country: DK (occurrence: DK)
  Receive Date: 20150609
  Receipt Date: 20160624
  Transmission Date: 20160815
  Serious: Yes (Hospitalization)
  Sender: FDA-Public Use
  Company Number: DK-MUNDIPHARMA DS AND PHARMACOVIGILANCE-GBR-2015-0028577

PATIENT
  Age: 92 Year
  Sex: Female

DRUGS (18)
  1. GAVISCON                           /00237601/ [Concomitant]
     Active Substance: ALUMINUM HYDROXIDE\MAGNESIUM CARBONATE
  2. ELTROXIN [Concomitant]
     Active Substance: LEVOTHYROXINE
     Dosage: 100 MCG, DAILY
  3. LAXOBERAL [Concomitant]
     Active Substance: SODIUM PICOSULFATE
     Dosage: UNK, PRN
  4. MULTIVITAMIN                       /00831701/ [Concomitant]
     Active Substance: VITAMINS
  5. AMLODIPINE [Suspect]
     Active Substance: AMLODIPINE BESYLATE
     Indication: HYPERTENSION
     Dosage: 5 MG, DAILY
     Route: 048
     Dates: start: 20150507
  6. CONTALGIN UNO DEPOTKAPSLER [Suspect]
     Active Substance: MORPHINE SULFATE
     Dosage: 5 MG, BID
     Route: 048
     Dates: start: 20140802
  7. AMLODIPINE [Suspect]
     Active Substance: AMLODIPINE BESYLATE
     Dosage: 5 MG, BID
     Route: 048
     Dates: start: 20141229
  8. LOSARTAN POTASSIUM. [Suspect]
     Active Substance: LOSARTAN POTASSIUM
     Indication: HYPERTENSION
     Dosage: UNK
     Route: 048
     Dates: start: 20030801
  9. ISOPTIN [Suspect]
     Active Substance: VERAPAMIL HYDROCHLORIDE
     Indication: PRODUCT USED FOR UNKNOWN INDICATION
     Dosage: UNK
     Route: 065
     Dates: end: 201502
  10. UNIKALK FORTE [Concomitant]
  11. CONTALGIN UNO DEPOTKAPSLER [Suspect]
     Active Substance: MORPHINE SULFATE
     Indication: PAIN
     Dosage: UNK UNK, BID
     Route: 048
     Dates: end: 20150509
  12. DIURAL                             /00016901/ [Concomitant]
     Dosage: 40 MG, DAILY
  13. CITALOPRAM [Suspect]
     Active Substance: CITALOPRAM HYDROBROMIDE
     Indication: DEPRESSION
     Dosage: 5 MG, DAILY
     Route: 048
     Dates: start: 20150507, end: 20150517
  14. CITALOPRAM [Suspect]
     Active Substance: CITALOPRAM HYDROBROMIDE
     Dosage: 10 MG, DAILY
     Route: 048
     Dates: start: 20140830
  15. PANTOPRAZOLE [Concomitant]
     Active Substance: PANTOPRAZOLE SODIUM
     Dosage: 40 MG, DAILY
  16. PINEX                              /00020001/ [Concomitant]
     Active Substance: ACETAMINOPHEN
     Dosage: 1 G, TID
  17. BETOLVEX                           /00056201/ [Concomitant]
     Active Substance: CYANOCOBALAMIN
     Dosage: UNK
     Dates: end: 20151123
  18. ESTROFEM                           /00045401/ [Concomitant]
     Dosage: 1 MG, 2/WEEK

REACTIONS (5)
  - Waist circumference increased [Not Recovered/Not Resolved]
  - Constipation [Not Recovered/Not Resolved]
  - Constipation [Not Recovered/Not Resolved]
  - Faeces hard [Not Recovered/Not Resolved]
  - Constipation [Not Recovered/Not Resolved]

NARRATIVE: CASE EVENT DATE: 201410
